FAERS Safety Report 7353114-0 (Version None)
Quarter: 2011Q1

REPORT INFORMATION
  Report Type: 
  Country: None (occurrence: None)
  Receive Date: 20110315
  Receipt Date: 20110307
  Transmission Date: 20110831
  Serious: Yes (Hospitalization, Other)
  Sender: FDA-Public Use
  Company Number: US-ELI_LILLY_AND_COMPANY-US201103002527

PATIENT
  Sex: Male

DRUGS (13)
  1. TRICOR [Concomitant]
  2. FORTEO [Suspect]
     Indication: OSTEOPOROSIS
     Dosage: 20 UG, DAILY (1/D)
     Dates: end: 20110307
  3. CRESTOR [Concomitant]
  4. DIGOXIN [Concomitant]
  5. KLOR-CON [Concomitant]
  6. SERTRALINE [Concomitant]
  7. COUMADIN [Concomitant]
  8. CARVEDILOL [Concomitant]
  9. SOTALOL HYDROCHLORIDE [Concomitant]
  10. BUMETANIDE [Concomitant]
  11. TAMSULOSIN [Concomitant]
  12. COLAZAL [Concomitant]
  13. ENTOCORT EC [Concomitant]

REACTIONS (6)
  - MALAISE [None]
  - DECREASED APPETITE [None]
  - PERICARDIAL EFFUSION [None]
  - VOMITING [None]
  - DEHYDRATION [None]
  - PULMONARY OEDEMA [None]
